FAERS Safety Report 20714319 (Version 1)
Quarter: 2022Q2

REPORT INFORMATION
  Report Type: Spontaneous
  Country: ES (occurrence: ES)
  Receive Date: 20220415
  Receipt Date: 20220415
  Transmission Date: 20220721
  Serious: Yes (Hospitalization)
  Sender: FDA-Public Use
  Company Number: None

PATIENT
  Sex: Male

DRUGS (8)
  1. BIMATOPROST\TIMOLOL [Suspect]
     Active Substance: BIMATOPROST\TIMOLOL
     Indication: Glaucoma
     Route: 047
     Dates: start: 20150525, end: 20200814
  2. ALPHAGAN P [Concomitant]
     Active Substance: BRIMONIDINE TARTRATE
     Route: 047
     Dates: start: 20170118
  3. FINASTERIDA ALTER [Concomitant]
     Route: 048
     Dates: start: 20150114
  4. ALOPURINOL CINFA [Concomitant]
     Dosage: 100 MG C/24H
     Route: 048
     Dates: start: 20110809
  5. RIVASTIGMINA ARISTO [Concomitant]
     Route: 048
     Dates: start: 20191120
  6. SIMVASTATINA ALMUS [Concomitant]
     Dosage: 20MG C/24H
     Route: 048
     Dates: start: 20090505
  7. LORAZEPAM [Concomitant]
     Active Substance: LORAZEPAM
     Dosage: 1MG C/24H
     Route: 048
     Dates: start: 20131203
  8. OMEPRAZOL ARISTO [Concomitant]
     Dosage: 20MG C/24H
     Route: 048
     Dates: start: 20120629

REACTIONS (2)
  - Bradycardia [Recovered/Resolved]
  - Dyspnoea [Recovered/Resolved]

NARRATIVE: CASE EVENT DATE: 20200814
